FAERS Safety Report 4347760-6 (Version None)
Quarter: 2004Q2

REPORT INFORMATION
  Report Type: 
  Country: None (occurrence: None)
  Receive Date: 20040422
  Receipt Date: 20040405
  Transmission Date: 20050107
  Serious: Yes (Hospitalization, Other)
  Sender: FDA-Public Use
  Company Number: USA020921473

PATIENT
  Age: 74 Year
  Sex: Female
  Weight: 96 kg

DRUGS (8)
  1. HUMULIN N [Suspect]
     Indication: DIABETES MELLITUS
     Dosage: 12 U/1 AT BEDTIME
     Dates: start: 19990101
  2. HUMULIN 70/30 [Suspect]
     Indication: DIABETES MELLITUS
     Dosage: 18 U/1 IN THE MORNING
     Dates: start: 19960101
  3. AVANDIA [Concomitant]
  4. METFORMIN HCL [Concomitant]
  5. LEXAPRO [Concomitant]
  6. ACTONEL [Concomitant]
  7. CALCIUM [Concomitant]
  8. FUROSEMIDE [Concomitant]

REACTIONS (15)
  - BLOOD GLUCOSE INCREASED [None]
  - BURSITIS [None]
  - CARPAL TUNNEL SYNDROME [None]
  - CEREBROVASCULAR ACCIDENT [None]
  - DIPLOPIA [None]
  - EYE DISORDER [None]
  - FEELING ABNORMAL [None]
  - INJECTION SITE HAEMORRHAGE [None]
  - INTESTINAL SPASM [None]
  - PHARMACEUTICAL PRODUCT COMPLAINT [None]
  - RETINAL DETACHMENT [None]
  - RHEUMATOID ARTHRITIS [None]
  - THYROID DISORDER [None]
  - TREMOR [None]
  - WEIGHT DECREASED [None]
